FAERS Safety Report 9672469 (Version 2)
Quarter: 2013Q4

REPORT INFORMATION
  Report Type: Spontaneous
  Country: JP (occurrence: JP)
  Receive Date: 20131106
  Receipt Date: 20131106
  Transmission Date: 20140711
  Serious: Yes (Hospitalization)
  Sender: FDA-Public Use
  Company Number: JP-TAKEDA-2013TJP001375

PATIENT
  Age: 64 Year
  Sex: Male
  Weight: 64 kg

DRUGS (9)
  1. LIOVEL COMBINATION TABLETS HD [Suspect]
     Indication: TYPE 2 DIABETES MELLITUS
     Dosage: 1 DF, UNK
     Route: 048
     Dates: start: 20121204, end: 20130924
  2. PLAVIX [Concomitant]
     Dosage: 75 MG, QD
     Route: 048
  3. ASPIRIN [Concomitant]
     Dosage: 100 MG, QD
     Route: 048
  4. METGLUCO [Concomitant]
     Dosage: 500 MG, BID
     Route: 048
  5. ATORVASTATIN CALCIUM [Concomitant]
     Dosage: 10 MG, QD
     Route: 048
  6. TANATRIL [Concomitant]
     Dosage: 5 MG, QD
     Route: 048
  7. AMLODIPINE BESILATE [Concomitant]
     Dosage: 5 MG, QD
     Route: 048
  8. ACARBOSE [Concomitant]
     Dosage: 100 MG, TID
     Route: 048
  9. ISONITOLL [Concomitant]
     Dosage: 20 MG, BID
     Route: 048

REACTIONS (3)
  - Bladder papilloma [Recovered/Resolved]
  - Nephrolithiasis [Unknown]
  - Haematuria [Recovering/Resolving]
